FAERS Safety Report 8396448-3 (Version None)
Quarter: 2012Q2

REPORT INFORMATION
  Report Type: 
  Country: None (occurrence: None)
  Receive Date: 20120530
  Receipt Date: 20111230
  Transmission Date: 20120825
  Serious: Yes (Death, Hospitalization)
  Sender: FDA-Public Use
  Company Number: RS-ROCHE-1072816

PATIENT
  Age: 40 Year
  Sex: Female

DRUGS (3)
  1. FLUDARABINE PHOSPHATE [Suspect]
     Indication: NON-HODGKIN'S LYMPHOMA
     Dosage: 40MGX3 DAYS
     Dates: start: 20110407, end: 20110913
  2. CYCLOPHOSPHAMIDE [Suspect]
     Indication: NON-HODGKIN'S LYMPHOMA
     Dosage: 400 MG X 3 DAYS
     Dates: start: 20110407, end: 20110913
  3. MABTHERA [Suspect]
     Indication: NON-HODGKIN'S LYMPHOMA
     Dates: start: 20110407, end: 20110913

REACTIONS (3)
  - THROMBOCYTOPENIA [None]
  - DEATH [None]
  - NEUTROPENIA [None]
